FAERS Safety Report 13512162 (Version 3)
Quarter: 2020Q3

REPORT INFORMATION
  Report Type: Report from Study
  Country: US (occurrence: US)
  Receive Date: 20170504
  Receipt Date: 20170522
  Transmission Date: 20201104
  Serious: Yes (Hospitalization)
  Sender: FDA-Public Use
  Company Number: US-JNJFOC-20170501308

PATIENT
  Age: 66 Year
  Sex: Male

DRUGS (33)
  1. LISINOPRIL. [Concomitant]
     Active Substance: LISINOPRIL
     Indication: HYPERTENSION
     Route: 048
     Dates: start: 20170308, end: 20170404
  2. BYSTOLIC [Concomitant]
     Active Substance: NEBIVOLOL HYDROCHLORIDE
     Indication: HYPERTENSION
     Route: 048
     Dates: start: 201508
  3. WAL?TUSSIN [Concomitant]
     Active Substance: DEXTROMETHORPHAN HYDROBROMIDE
     Indication: COUGH
     Dosage: 200MG/10ML (Q4HR)PRN
     Route: 048
     Dates: start: 20170306
  4. CALCIUM CARBONATE W/MAGNESIUM HYDROXIDE [Concomitant]
     Indication: SUPPLEMENTATION THERAPY
     Dosage: 500/250 (1) TAB DAILY
     Route: 048
     Dates: start: 20161201
  5. METAMUCIL [Concomitant]
     Active Substance: PLANTAGO SEED
     Indication: DIARRHOEA
     Dosage: 2 T, QD (MIXED IN 8 OZ OF WATER)
     Route: 048
     Dates: start: 20170123
  6. ABREVA [Concomitant]
     Active Substance: DOCOSANOL
     Indication: ORAL HERPES
     Dosage: UPTO 5 TIMES PER DAY FOR 10 DAYS
     Route: 061
     Dates: start: 20170413
  7. NOVOLOG [Concomitant]
     Active Substance: INSULIN ASPART
     Indication: DIABETES MELLITUS
     Dosage: SLIDING SCALE, TID AS NEEDED BEFORE MEALS
     Route: 058
     Dates: start: 20060320
  8. EVEROLIMUS. [Suspect]
     Active Substance: EVEROLIMUS
     Indication: RENAL CELL CARCINOMA
     Dosage: 5 MG, QD
     Route: 048
     Dates: start: 20161221, end: 20170426
  9. CALCIUM CARBONATE. [Concomitant]
     Active Substance: CALCIUM CARBONATE
     Indication: MINERAL SUPPLEMENTATION
     Route: 048
     Dates: start: 201508
  10. VITAMIN B6 [Concomitant]
     Active Substance: PYRIDOXINE HYDROCHLORIDE
     Indication: SUPPLEMENTATION THERAPY
     Route: 048
     Dates: start: 1980
  11. IBRUTINIB [Suspect]
     Active Substance: IBRUTINIB
     Indication: RENAL CELL CARCINOMA
     Dosage: 560 MG, QD
     Route: 048
     Dates: start: 20161221, end: 20170426
  12. EVEROLIMUS. [Suspect]
     Active Substance: EVEROLIMUS
     Indication: RENAL CELL CARCINOMA
     Route: 048
     Dates: start: 20170503
  13. XGEVA [Concomitant]
     Active Substance: DENOSUMAB
     Indication: SUPPLEMENTATION THERAPY
     Route: 058
     Dates: start: 20151118
  14. ESCITALOPRAM [Concomitant]
     Active Substance: ESCITALOPRAM OXALATE
     Indication: DEPRESSION
     Route: 048
     Dates: start: 2015
  15. LISINOPRIL. [Concomitant]
     Active Substance: LISINOPRIL
     Indication: PROTEINURIA
     Route: 048
     Dates: start: 20170308, end: 20170404
  16. OMEPRAZOLE. [Concomitant]
     Active Substance: OMEPRAZOLE
     Indication: GASTROOESOPHAGEAL REFLUX DISEASE
     Route: 048
     Dates: start: 201606
  17. SIMVASTATIN. [Concomitant]
     Active Substance: SIMVASTATIN
     Indication: HYPERCHOLESTEROLAEMIA
     Route: 048
     Dates: start: 2010
  18. VITAMIN D3 [Concomitant]
     Active Substance: CHOLECALCIFEROL
     Indication: SUPPLEMENTATION THERAPY
     Route: 048
     Dates: start: 201412
  19. IBRUTINIB [Suspect]
     Active Substance: IBRUTINIB
     Indication: RENAL CELL CARCINOMA
     Route: 048
     Dates: start: 20170503
  20. CLONIDINE. [Concomitant]
     Active Substance: CLONIDINE
     Indication: HYPERTENSION
     Route: 048
     Dates: start: 20170414
  21. FUROSEMIDE. [Concomitant]
     Active Substance: FUROSEMIDE
     Indication: RENAL IMPAIRMENT
     Route: 048
     Dates: start: 20170419
  22. XARELTO [Concomitant]
     Active Substance: RIVAROXABAN
     Indication: THROMBOSIS PROPHYLAXIS
     Route: 048
     Dates: start: 20161107
  23. TRAMADOL. [Concomitant]
     Active Substance: TRAMADOL
     Indication: PAIN
     Dates: start: 20170104
  24. COENZYME Q10 [Concomitant]
     Active Substance: DIETARY SUPPLEMENT\UBIDECARENONE
     Indication: SUPPLEMENTATION THERAPY
     Route: 048
     Dates: start: 20000630
  25. LISINOPRIL. [Concomitant]
     Active Substance: LISINOPRIL
     Indication: HYPERTENSION
     Route: 048
     Dates: start: 20170405
  26. ACETAMINOPHEN. [Concomitant]
     Active Substance: ACETAMINOPHEN
     Indication: PAIN
     Dosage: 325 MG, (X2 TABLETS) PRN
     Route: 048
     Dates: start: 1980
  27. LOPERAMIDE [Concomitant]
     Active Substance: LOPERAMIDE
     Indication: DIARRHOEA
     Dosage: 2 MG (X2 PILLS, MAX OF 6 PILLS)
     Dates: start: 20170104
  28. MELATONIN [Concomitant]
     Active Substance: MELATONIN
     Indication: INSOMNIA
     Dosage: 3 MG, QHS, AS NEEDED
     Route: 048
     Dates: start: 2005
  29. MUGARD [Concomitant]
     Indication: STOMATITIS
     Dosage: SWISH, SPIT OR SWALLOW AS NEEDED
     Dates: start: 20161228
  30. ALPRAZOLAM. [Concomitant]
     Active Substance: ALPRAZOLAM
     Indication: INSOMNIA
     Route: 048
     Dates: start: 201502
  31. LANTUS [Concomitant]
     Active Substance: INSULIN GLARGINE
     Indication: DIABETES MELLITUS
     Route: 058
     Dates: start: 20060320
  32. LISINOPRIL. [Concomitant]
     Active Substance: LISINOPRIL
     Indication: PROTEINURIA
     Route: 048
     Dates: start: 20170405
  33. MINOCYCLINE [Concomitant]
     Active Substance: MINOCYCLINE HYDROCHLORIDE
     Indication: CELLULITIS
     Route: 048
     Dates: start: 20170306

REACTIONS (1)
  - Pleural effusion [Recovered/Resolved]

NARRATIVE: CASE EVENT DATE: 20170425
